FAERS Safety Report 21263946 (Version 1)
Quarter: 2022Q3

REPORT INFORMATION
  Report Type: Spontaneous
  Country: FR (occurrence: FR)
  Receive Date: 20220829
  Receipt Date: 20220829
  Transmission Date: 20221027
  Serious: Yes (Hospitalization)
  Sender: FDA-Public Use
  Company Number: FR-NOVARTISPH-NVSC2022FR192117

PATIENT
  Age: 87 Year
  Sex: Male

DRUGS (17)
  1. VANCOMYCIN [Suspect]
     Active Substance: VANCOMYCIN
     Indication: Anaesthesia
     Dosage: UNK
     Route: 065
     Dates: start: 20121003, end: 20121003
  2. HEPARIN SODIUM [Suspect]
     Active Substance: HEPARIN SODIUM
     Indication: Extracorporeal circulation
     Dosage: 16000 + 4000 (BOLUS) LAST DOSE AT: 03-OCT-2012
     Route: 042
     Dates: start: 20121003
  3. ETOMIDATE [Suspect]
     Active Substance: ETOMIDATE
     Indication: Induction and maintenance of anaesthesia
     Dosage: UNK
     Route: 065
     Dates: start: 20121003, end: 20121003
  4. TRANEXAMIC ACID [Suspect]
     Active Substance: TRANEXAMIC ACID
     Indication: Haemorrhage prophylaxis
     Dosage: UNK
     Route: 065
     Dates: start: 20121003, end: 20121003
  5. NIMBEX [Suspect]
     Active Substance: CISATRACURIUM BESYLATE
     Indication: Anaesthesia
     Dosage: UNK
     Route: 065
     Dates: start: 20121003, end: 20121003
  6. GINKGO [Suspect]
     Active Substance: GINKGO
     Indication: Cognitive disorder
     Dosage: 40 MG
     Route: 065
     Dates: end: 20121003
  7. PROPOFOL [Suspect]
     Active Substance: PROPOFOL
     Indication: Anaesthesia
     Dosage: UNK
     Route: 042
     Dates: start: 20121003, end: 20121003
  8. KARDEGIC [Suspect]
     Active Substance: ASPIRIN DL-LYSINE
     Indication: Cardiovascular event prophylaxis
     Dosage: 75 MG, QD
     Route: 065
  9. THROMBIN [Suspect]
     Active Substance: THROMBIN
     Indication: Haemostasis
     Dosage: UNK
     Route: 065
     Dates: start: 20121003, end: 20121003
  10. KETAMINE [Suspect]
     Active Substance: KETAMINE
     Indication: Anaesthesia
     Dosage: UNK
     Route: 042
     Dates: start: 20121003, end: 20121003
  11. ATARAX [Suspect]
     Active Substance: HYDROXYZINE HYDROCHLORIDE
     Indication: Anxiety
     Dosage: 50MG + 25MG
     Route: 048
     Dates: start: 20121002, end: 20121003
  12. SUFENTANIL [Suspect]
     Active Substance: SUFENTANIL
     Indication: Anaesthesia
     Dosage: UNK
     Route: 065
     Dates: start: 20121003, end: 20121003
  13. ESOMEPRAZOLE [Concomitant]
     Active Substance: ESOMEPRAZOLE
     Indication: Prophylaxis against gastrointestinal ulcer
     Dosage: 20 MG + 40 MG
     Route: 065
     Dates: start: 20121003
  14. CRESTOR [Concomitant]
     Active Substance: ROSUVASTATIN CALCIUM
     Indication: Dyslipidaemia
     Dosage: 5 MG, QD
     Route: 065
  15. ESCODARONE [Concomitant]
     Indication: Product used for unknown indication
     Dosage: 200 MG, QD
     Route: 065
  16. ZOLPIDEM TARTRATE [Concomitant]
     Active Substance: ZOLPIDEM TARTRATE
     Indication: Insomnia
     Dosage: 10 MG, QD
     Route: 065
  17. AVODART [Concomitant]
     Active Substance: DUTASTERIDE
     Indication: Product used for unknown indication
     Dosage: UNK
     Route: 048
     Dates: end: 20121001

REACTIONS (1)
  - Post procedural haemorrhage [Recovered/Resolved]

NARRATIVE: CASE EVENT DATE: 20121003
